FAERS Safety Report 21520114 (Version 1)
Quarter: 2022Q4

REPORT INFORMATION
  Report Type: Spontaneous
  Country: GB (occurrence: GB)
  Receive Date: 20221028
  Receipt Date: 20221028
  Transmission Date: 20230112
  Serious: Yes (Other)
  Sender: FDA-Public Use
  Company Number: GB-GILEAD-2022-0602470

PATIENT
  Sex: Female

DRUGS (1)
  1. BIKTARVY [Suspect]
     Active Substance: BICTEGRAVIR SODIUM\EMTRICITABINE\TENOFOVIR ALAFENAMIDE FUMARATE
     Indication: HIV infection
     Dosage: UNK
     Route: 065
     Dates: start: 202205

REACTIONS (3)
  - Alopecia [Not Recovered/Not Resolved]
  - Psychiatric symptom [Not Recovered/Not Resolved]
  - Self esteem decreased [Not Recovered/Not Resolved]

NARRATIVE: CASE EVENT DATE: 20220101
